FAERS Safety Report 9139915 (Version 1)
Quarter: 2013Q1

REPORT INFORMATION
  Report Type: Spontaneous
  Country: US (occurrence: US)
  Receive Date: 20130305
  Receipt Date: 20130305
  Transmission Date: 20140127
  Serious: No
  Sender: FDA-Public Use
  Company Number: US-TEVA-389647USA

PATIENT
  Sex: Male

DRUGS (3)
  1. QNASL [Suspect]
     Indication: MULTIPLE ALLERGIES
     Dates: start: 201211, end: 201301
  2. BLOOD PRESSURE MEDICATION [Concomitant]
  3. ASPIRIN [Concomitant]

REACTIONS (1)
  - Epistaxis [Recovered/Resolved]
